FAERS Safety Report 9625503 (Version 1)
Quarter: 2013Q4

REPORT INFORMATION
  Report Type: Spontaneous
  Country: BR (occurrence: BR)
  Receive Date: 20131016
  Receipt Date: 20131016
  Transmission Date: 20140711
  Serious: Yes (Other)
  Sender: FDA-Public Use
  Company Number: BR-AMGEN-BRASP2013072382

PATIENT
  Age: 49 Year
  Sex: Female
  Weight: 81 kg

DRUGS (5)
  1. ENBREL [Suspect]
     Indication: RHEUMATOID ARTHRITIS
     Dosage: 50 MG, ONCE WEEKLY
     Route: 058
     Dates: start: 20130612, end: 201308
  2. ENBREL [Suspect]
     Dosage: UNK
     Route: 065
     Dates: start: 20130828
  3. SELOZOK [Concomitant]
     Dosage: STRENGTH 850MG, UNK
  4. GLIFAGE [Concomitant]
     Dosage: STRENGTH 500MG, UNK
  5. OMEPRAZOLE [Concomitant]
     Dosage: STRENGTH 20MG, UNK

REACTIONS (8)
  - Uterine disorder [Unknown]
  - Ovarian disorder [Unknown]
  - Pain [Unknown]
  - Erythema [Unknown]
  - Skin discolouration [Unknown]
  - Pruritus [Unknown]
  - Cold sweat [Unknown]
  - Pyrexia [Unknown]
